FAERS Safety Report 11866209 (Version 2)
Quarter: 2017Q1

REPORT INFORMATION
  Report Type: Report from Study
  Country: US (occurrence: US)
  Receive Date: 20151223
  Receipt Date: 20170201
  Transmission Date: 20170428
  Serious: No
  Sender: FDA-Public Use
  Company Number: US-EXELIXIS-CABO-15005841

PATIENT
  Sex: Female

DRUGS (5)
  1. COMETRIQ [Suspect]
     Active Substance: CABOZANTINIB S-MALATE
     Indication: THYROID CANCER
     Dosage: 100 MG, QD
     Route: 048
     Dates: start: 20151116, end: 201512
  2. LEVOTHYROXINE. [Concomitant]
     Active Substance: LEVOTHYROXINE
  3. COMETRIQ [Suspect]
     Active Substance: CABOZANTINIB S-MALATE
     Dosage: 80 MG, QD
     Route: 048
     Dates: start: 201603
  4. COMETRIQ [Suspect]
     Active Substance: CABOZANTINIB S-MALATE
     Dosage: 120 MG, QD
     Route: 048
     Dates: start: 201512, end: 20160114
  5. METFORMIN [Concomitant]
     Active Substance: METFORMIN HYDROCHLORIDE

REACTIONS (9)
  - Hepatic enzyme increased [Unknown]
  - Palmar-plantar erythrodysaesthesia syndrome [Unknown]
  - Dysmenorrhoea [Unknown]
  - Fatigue [Unknown]
  - Hot flush [Unknown]
  - Acne [Unknown]
  - Oral pain [Unknown]
  - Menopausal symptoms [Not Recovered/Not Resolved]
  - Dermatitis acneiform [Unknown]
